FAERS Safety Report 7077304-X (Version None)
Quarter: 2010Q4

REPORT INFORMATION
  Report Type: 
  Country: None (occurrence: None)
  Receive Date: 20101029
  Receipt Date: 20101029
  Transmission Date: 20110411
  Serious: No
  Sender: FDA-Public Use
  Company Number: None

PATIENT
  Sex: Male
  Weight: 95.2554 kg

DRUGS (2)
  1. OXYCONTIN OP 20 MG [Suspect]
     Indication: ARTHRALGIA
     Dosage: 20 - 40 MG 2 X DAY PO
     Route: 048
     Dates: start: 20100915, end: 20101028
  2. OXYCONTIN OP 20 MG [Suspect]
     Indication: BACK PAIN
     Dosage: 20 - 40 MG 2 X DAY PO
     Route: 048
     Dates: start: 20100915, end: 20101028

REACTIONS (4)
  - ABDOMINAL PAIN UPPER [None]
  - CONSTIPATION [None]
  - DRUG INEFFECTIVE [None]
  - PRODUCT FORMULATION ISSUE [None]
